FAERS Safety Report 9964386 (Version 2)
Quarter: 2014Q1

REPORT INFORMATION
  Report Type: Spontaneous
  Country: JP (occurrence: JP)
  Receive Date: 20140305
  Receipt Date: 20140318
  Transmission Date: 20141002
  Serious: Yes (Other)
  Sender: FDA-Public Use
  Company Number: JP-GLAXOSMITHKLINE-B0973411A

PATIENT
  Age: 25 Year
  Sex: Male

DRUGS (3)
  1. RELENZA [Suspect]
     Indication: INFLUENZA
     Dosage: 10MG TWICE PER DAY
     Route: 055
     Dates: start: 20140225, end: 20140227
  2. EBASTINE [Concomitant]
     Indication: RHINITIS
     Dosage: 10MG PER DAY
     Route: 048
  3. FLUNASE (JAPAN) [Concomitant]
     Indication: RHINITIS
     Dosage: 50MG TWICE PER DAY
     Route: 045

REACTIONS (1)
  - Hypothermia [Recovered/Resolved]
